FAERS Safety Report 14879803 (Version 1)
Quarter: 2018Q2

REPORT INFORMATION
  Report Type: Spontaneous
  Country: US (occurrence: US)
  Receive Date: 20180511
  Receipt Date: 20180511
  Transmission Date: 20180711
  Serious: Yes (Hospitalization, Other)
  Sender: FDA-Public Use
  Company Number: US-LUPIN PHARMACEUTICALS INC.-2018-03522

PATIENT
  Age: 53 Year
  Sex: Male

DRUGS (1)
  1. TESTOSTERONE. [Suspect]
     Active Substance: TESTOSTERONE
     Indication: MUSCLE BUILDING THERAPY
     Dosage: UNK
     Route: 030

REACTIONS (7)
  - Presyncope [None]
  - Mitral valve incompetence [None]
  - Cardiomyopathy [Unknown]
  - Blood testosterone increased [Unknown]
  - Pulmonary hypertension [None]
  - Cardiac murmur [None]
  - Cardiac failure [None]
